FAERS Safety Report 9752400 (Version 1)
Quarter: 2013Q4

REPORT INFORMATION
  Report Type: Spontaneous
  Country: US (occurrence: None)
  Receive Date: 20131212
  Receipt Date: 20131212
  Transmission Date: 20140711
  Serious: No
  Sender: FDA-Public Use
  Company Number: None

PATIENT
  Age: 66 None
  Sex: Female

DRUGS (5)
  1. FLUTICASONE [Suspect]
     Indication: NASOPHARYNGITIS
  2. CALCLIM WOMENS [Concomitant]
  3. GARLIC CARE FISH OIL [Concomitant]
  4. OPTIZINC [Concomitant]
  5. CINAMMON [Concomitant]

REACTIONS (5)
  - Dizziness [None]
  - Chest discomfort [None]
  - Respiratory disorder [None]
  - Exposure via partner [None]
  - Feeling abnormal [None]
